FAERS Safety Report 15863013 (Version 2)
Quarter: 2019Q1

REPORT INFORMATION
  Report Type: Spontaneous
  Country: US (occurrence: US)
  Receive Date: 20190124
  Receipt Date: 20190307
  Transmission Date: 20190417
  Serious: No
  Sender: FDA-Public Use
  Company Number: US-TEVA-2018-US-994123

PATIENT
  Sex: Female

DRUGS (9)
  1. TOLTERODINE [Concomitant]
     Active Substance: TOLTERODINE
  2. NEXIUM [Concomitant]
     Active Substance: ESOMEPRAZOLE MAGNESIUM
  3. TRIAMTERENE. [Concomitant]
     Active Substance: TRIAMTERENE
  4. EZETIMIBE. [Concomitant]
     Active Substance: EZETIMIBE
  5. GABAPENTIN. [Concomitant]
     Active Substance: GABAPENTIN
  6. VIT-D3 [Concomitant]
  7. GABAPENTIN TEVA [Suspect]
     Active Substance: GABAPENTIN
     Indication: MULTIPLE SCLEROSIS
     Dates: start: 20181227
  8. ZYTEC [Concomitant]
  9. BABY ASPIRIN [Concomitant]
     Active Substance: ASPIRIN

REACTIONS (5)
  - Limb discomfort [Recovered/Resolved]
  - Product use in unapproved indication [Unknown]
  - Gait disturbance [Recovered/Resolved]
  - Product substitution issue [Unknown]
  - Peripheral swelling [Recovered/Resolved]

NARRATIVE: CASE EVENT DATE: 201812
